FAERS Safety Report 4804361-0 (Version None)
Quarter: 2005Q4

REPORT INFORMATION
  Report Type: 
  Country: None (occurrence: None)
  Receive Date: 20051017
  Receipt Date: 20050930
  Transmission Date: 20060501
  Serious: Yes (Hospitalization)
  Sender: FDA-Public Use
  Company Number: 2005RR-00883

PATIENT
  Age: 92 Year
  Sex: 0

DRUGS (11)
  1. ASPIRIN [Suspect]
     Indication: PROPHYLAXIS
     Dosage: ORAL
     Route: 048
     Dates: end: 20050914
  2. ALENDRONATE (ALENDRONIC ACID) [Suspect]
     Indication: OSTEOPOROSIS PROPHYLAXIS
     Dosage: 70 MG, 1/WEEK, ORAL
     Route: 048
     Dates: end: 20050914
  3. PREDNISONE [Suspect]
     Indication: POLYMYALGIA RHEUMATICA
     Dosage: 1 MG, QD, ORAL
     Route: 048
     Dates: end: 20050914
  4. ATORVASTATIN [Concomitant]
  5. GTN [Concomitant]
  6. DILTIAZEM [Concomitant]
  7. RANITIDINE TABLETS BP 150 MG (RANTITIDINE) [Concomitant]
  8. ADCAL-D3 [Concomitant]
  9. FERROUS SULFATE TAB [Concomitant]
  10. LISINOPRIL TABLETS 20MG (LISINOPRIL) [Concomitant]
  11. SODIUM FUSIDATE [Concomitant]

REACTIONS (5)
  - GASTROINTESTINAL HAEMORRHAGE [None]
  - HAEMATEMESIS [None]
  - OESOPHAGEAL ULCER [None]
  - ORAL INTAKE REDUCED [None]
  - VOMITING [None]
